FAERS Safety Report 8736563 (Version 3)
Quarter: 2016Q4

REPORT INFORMATION
  Report Type: Report from Study
  Country: CA (occurrence: CA)
  Receive Date: 20120822
  Receipt Date: 20161007
  Transmission Date: 20170207
  Serious: Yes (Other)
  Sender: FDA-Public Use
  Company Number: CA-UCBSA-063827

PATIENT
  Age: 66 Year
  Sex: Female
  Weight: 84 kg

DRUGS (11)
  1. PERCOCET [Concomitant]
     Active Substance: ACETAMINOPHEN\OXYCODONE HYDROCHLORIDE
     Indication: PAIN
     Dosage: 2 TABS
     Route: 048
  2. NAPROXEN. [Concomitant]
     Active Substance: NAPROXEN
     Indication: PRODUCT USED FOR UNKNOWN INDICATION
     Dosage: UNK
  3. GABAPENTIN. [Concomitant]
     Active Substance: GABAPENTIN
     Indication: PAIN
     Dosage: 400 MG, 3X/DAY (TID)
     Route: 048
  4. SYNTHROID [Concomitant]
     Active Substance: LEVOTHYROXINE SODIUM
     Indication: HYPOTHYROIDISM
     Dosage: .125 MG, ONCE DAILY (QD)
     Route: 048
  5. CEFALEXIN [Concomitant]
     Active Substance: CEPHALEXIN
     Indication: PRODUCT USED FOR UNKNOWN INDICATION
     Dosage: 500 MG, 4X/DAY (QID)
  6. PROZAC [Concomitant]
     Active Substance: FLUOXETINE HYDROCHLORIDE
     Indication: ANTIDEPRESSANT THERAPY
     Dosage: 20 MG, ONCE DAILY (QD)
     Route: 048
  7. PREDNISONE. [Suspect]
     Active Substance: PREDNISONE
     Indication: CONDITION AGGRAVATED
     Dosage: 25 MG, ONCE DAILY (QD)
     Route: 048
     Dates: start: 20120803
  8. KENALOG [Concomitant]
     Active Substance: TRIAMCINOLONE ACETONIDE
     Indication: PRODUCT USED FOR UNKNOWN INDICATION
     Dosage: UNK
  9. OXYNEO [Concomitant]
     Active Substance: OXYCODONE
     Indication: PAIN
     Dosage: 20 MG, 3X/DAY (TID)
     Route: 048
  10. TAMAZEPAM [Concomitant]
     Active Substance: TEMAZEPAM
     Dosage: BEDTIME DAILY
  11. CERTOLIZUMAB PEGOL RA [Suspect]
     Active Substance: CERTOLIZUMAB PEGOL
     Indication: RHEUMATOID ARTHRITIS
     Dosage: EVERY 2 WEEKS X3
     Route: 058
     Dates: start: 20120803, end: 20120803

REACTIONS (4)
  - Impaired healing [Unknown]
  - Localised infection [Recovering/Resolving]
  - Rheumatoid arthritis [Unknown]
  - Haematoma [Unknown]

NARRATIVE: CASE EVENT DATE: 20120809
